FAERS Safety Report 21930446 (Version 1)
Quarter: 2023Q1

REPORT INFORMATION
  Report Type: Spontaneous
  Country: IL (occurrence: IL)
  Receive Date: 20230131
  Receipt Date: 20230131
  Transmission Date: 20230417
  Serious: Yes (Hospitalization)
  Sender: FDA-Public Use
  Company Number: IL-009507513-2301ISR008872

PATIENT
  Age: 57 Year
  Sex: Female

DRUGS (27)
  1. ZERBAXA [Suspect]
     Active Substance: CEFTOLOZANE SULFATE\TAZOBACTAM SODIUM
     Dosage: 1 GRAM/0.5 GRAM AT 9 GRAMS DOSE
     Dates: start: 20221229
  2. CLONAZEPAM [Concomitant]
     Active Substance: CLONAZEPAM
     Dosage: 0.5 MILLIGRAM
     Dates: start: 20221229
  3. CEFTAZIDIME [Concomitant]
     Active Substance: CEFTAZIDIME
     Dosage: 2 GRAM
  4. ENOXAPARIN SODIUM [Concomitant]
     Active Substance: ENOXAPARIN SODIUM
     Dosage: UNK
  5. ASPIRIN [Concomitant]
     Active Substance: ASPIRIN
  6. IMIPRAMINE HYDROCHLORIDE [Concomitant]
     Active Substance: IMIPRAMINE HYDROCHLORIDE
     Dosage: INJECTION
  7. AEROVENT [IPRATROPIUM BROMIDE] [Concomitant]
  8. RILUTEK [Concomitant]
     Active Substance: RILUZOLE
  9. OXYCOD [OXYCODONE HYDROCHLORIDE] [Concomitant]
     Dosage: 2 MG/ML
  10. CADEX [DOXAZOSIN MESILATE] [Concomitant]
     Dosage: 2 MILLIGRAM
  11. LACTULOSE [Concomitant]
     Active Substance: LACTULOSE
  12. CANDESARTAN CILEXETIL\HYDROCHLOROTHIAZIDE [Concomitant]
     Active Substance: CANDESARTAN CILEXETIL\HYDROCHLOROTHIAZIDE
  13. NEXIUM EBB [Concomitant]
     Dosage: 40 MILLIGRAM
  14. TRAMADOL [Concomitant]
     Active Substance: TRAMADOL
     Dosage: INJECTION 100
  15. FLUCONAZOLE [Concomitant]
     Active Substance: FLUCONAZOLE
     Dosage: 200
  16. FENTANYL TRANSDERMAL SYSTEM [Concomitant]
     Active Substance: FENTANYL
     Dosage: 12
  17. PROPOFOL LIPURO [Concomitant]
     Active Substance: PROPOFOL
     Dosage: 2 PERCENT
  18. CEFTRIAXONE FRESENIUS [Concomitant]
  19. PIPERACILLIN/TAZOBACTAM FRESENIUS [Concomitant]
     Dosage: 4 GRAM/0.5 GRAMUNK
  20. PARACETAMOL FRESENIUS [Concomitant]
     Dosage: 10 MG/ML
  21. VANCOMYCIN LYOMARK [Concomitant]
     Dosage: 1000 MILLIGRAM
  22. MEROPENEM FRESENIUS [Concomitant]
     Dosage: 1000 MILLIGRAM
  23. POTASSIUM CHLORIDE\SODIUM CHLORIDE [Concomitant]
     Active Substance: POTASSIUM CHLORIDE\SODIUM CHLORIDE
     Dosage: 0.3 PERCENT
  24. NOREPINEPHRINE\NOREPINEPHRINE BITARTRATE [Concomitant]
     Active Substance: NOREPINEPHRINE\NOREPINEPHRINE BITARTRATE
     Dosage: 4 MG/4 ML
  25. FUROSEMIDE [Concomitant]
     Active Substance: FUROSEMIDE
     Dosage: 20 MG/2 ML
  26. DIPYRONE [Concomitant]
     Active Substance: DIPYRONE
  27. DULOXETINE HYDROCHLORIDE [Concomitant]
     Active Substance: DULOXETINE HYDROCHLORIDE

REACTIONS (1)
  - Liver function test abnormal [Unknown]
